FAERS Safety Report 5329800-0 (Version None)
Quarter: 2007Q2

REPORT INFORMATION
  Report Type: 
  Country: None (occurrence: None)
  Receive Date: 20070521
  Receipt Date: 20070507
  Transmission Date: 20071010
  Serious: Yes (Hospitalization, Other)
  Sender: FDA-Public Use
  Company Number: US-ELI_LILLY_AND_COMPANY-US200601003527

PATIENT
  Age: 49 Year
  Sex: Male
  Weight: 73.015 kg

DRUGS (30)
  1. DILANTIN [Concomitant]
     Indication: EPILEPSY
     Dosage: 100 MG, DAILY (1/D)
     Route: 048
     Dates: start: 19991207, end: 20020107
  2. DILANTIN [Concomitant]
     Dosage: 200 MG, 2/D
     Route: 048
     Dates: start: 20020108, end: 20020110
  3. DILANTIN [Concomitant]
     Dosage: 100 MG, DAILY (1/D)
     Route: 048
     Dates: end: 20041108
  4. NEFAZODONE HCL [Concomitant]
     Dosage: 200 MG, EACH EVENING
     Route: 048
     Dates: start: 20011224, end: 20011225
  5. NEFAZODONE HCL [Concomitant]
     Dosage: 100 MG, EACH EVENING
     Dates: start: 20011226
  6. LORAZEPAM [Concomitant]
     Dosage: 2 MG, AS NEEDED
     Route: 030
     Dates: start: 20011225, end: 20011225
  7. LORAZEPAM [Concomitant]
     Dosage: 2 MG, AS NEEDED
     Route: 030
     Dates: start: 20020108, end: 20020108
  8. ENOXAPARIN SODIUM [Concomitant]
     Dosage: 70 MG, 2/D
     Route: 058
     Dates: start: 20020126, end: 20020129
  9. HEPARIN [Concomitant]
     Dosage: 10 ML, DAILY (1/D)
     Route: 042
     Dates: start: 20020107, end: 20020107
  10. HEPARIN [Concomitant]
     Dosage: 10 ML, DAILY (1/D)
     Route: 042
     Dates: start: 20020109, end: 20020109
  11. FOSPHENYTOIN [Concomitant]
     Indication: EPILEPSY
     Dosage: 200 MG, 2/D
     Route: 065
     Dates: start: 20011224, end: 20020107
  12. FOSPHENYTOIN [Concomitant]
     Dosage: 200 MG, EACH MORNING
     Route: 065
     Dates: start: 20020108, end: 20020108
  13. CLONAZEPAM [Concomitant]
     Dosage: 0.5 MG, 3/D
     Route: 048
     Dates: start: 19991105, end: 20020125
  14. WELLBUTRIN [Concomitant]
     Dosage: 150 MG, 2/D
     Route: 048
     Dates: start: 20000103, end: 20000224
  15. WELLBUTRIN [Concomitant]
     Dosage: 150 MG, 3/D
     Route: 048
     Dates: start: 20000224, end: 20001229
  16. BUSPAR [Concomitant]
     Dosage: 15 MG, 2/D
     Route: 048
     Dates: start: 20000224, end: 20000726
  17. EFFEXOR [Concomitant]
     Dosage: 75 MG, DAILY (1/D)
     Route: 048
     Dates: start: 20000511, end: 20000814
  18. EFFEXOR [Concomitant]
     Dosage: 150 MG, 2/D
     Route: 048
     Dates: start: 20000814, end: 20001229
  19. PROZAC [Concomitant]
     Dosage: 20 MG, EACH MORNING
     Route: 048
     Dates: start: 20010423, end: 20010523
  20. CELEXA [Concomitant]
     Dosage: 40 MG, EACH MORNING
     Route: 048
     Dates: start: 20010625, end: 20011225
  21. CELEXA [Concomitant]
     Dosage: 80 MG, EACH MORNING
     Route: 048
     Dates: start: 20011226, end: 20020107
  22. CELEXA [Concomitant]
     Dosage: 40 MG, DAILY (1/D)
     Route: 048
     Dates: start: 20020108, end: 20020125
  23. CELEXA [Concomitant]
     Dosage: 20 MG, EACH MORNING
     Dates: start: 20020126, end: 20031114
  24. GEODON [Concomitant]
     Dosage: 20 MG, 2/D
     Route: 048
     Dates: start: 20020124
  25. DEPAKOTE [Concomitant]
     Dosage: 250 MG, 3/D
     Route: 048
     Dates: start: 20020708, end: 20030912
  26. DEPAKOTE [Concomitant]
     Dosage: 500 MG, 2/D
     Route: 048
     Dates: start: 20030912, end: 20050511
  27. IMIPRAMINE [Concomitant]
     Dosage: 25 MG, EACH EVENING
     Route: 048
     Dates: start: 20020205, end: 20050126
  28. ZYPREXA [Suspect]
     Indication: DEPRESSION
     Dosage: 10 MG, EACH EVENING
     Route: 048
     Dates: start: 19991208, end: 20011223
  29. ZYPREXA [Suspect]
     Dosage: 20 MG, EACH EVENING
     Route: 048
     Dates: start: 20011224, end: 20030101
  30. ZYPREXA [Suspect]
     Dosage: 5 MG, EACH EVENING
     Route: 048
     Dates: start: 20021114, end: 20030101

REACTIONS (15)
  - APPENDICITIS PERFORATED [None]
  - COLLAPSE OF LUNG [None]
  - DEEP VEIN THROMBOSIS [None]
  - DIABETES MELLITUS NON-INSULIN-DEPENDENT [None]
  - GLYCOSYLATED HAEMOGLOBIN INCREASED [None]
  - HAEMOGLOBIN DECREASED [None]
  - HYPOXIA [None]
  - INTERNATIONAL NORMALISED RATIO INCREASED [None]
  - INTRA-ABDOMINAL HAEMORRHAGE [None]
  - MITRAL VALVE PROLAPSE [None]
  - PLEURAL EFFUSION [None]
  - PNEUMONITIS [None]
  - PROTHROMBIN CONSUMPTION TIME PROLONGED [None]
  - PULMONARY EMBOLISM [None]
  - RED BLOOD CELL COUNT DECREASED [None]
